FAERS Safety Report 7941806-1 (Version None)
Quarter: 2011Q4

REPORT INFORMATION
  Report Type: 
  Country: None (occurrence: None)
  Receive Date: 20111128
  Receipt Date: 20111127
  Transmission Date: 20120403
  Serious: No
  Sender: FDA-Public Use
  Company Number: US-PFIZER INC-2011286084

PATIENT
  Sex: Female
  Weight: 68.934 kg

DRUGS (24)
  1. CELEXA [Suspect]
     Dosage: 20 MG, DAILY
     Route: 048
  2. CELEXA [Suspect]
     Dosage: 40 MG, DAILY
     Route: 048
     Dates: start: 20111101
  3. VITAMIN D [Concomitant]
     Dosage: UNK
  4. CHANTIX [Suspect]
     Indication: SMOKING CESSATION THERAPY
     Dosage: 0.5 MG, 1X/DAY
     Route: 048
     Dates: start: 20111103, end: 20111101
  5. CELEXA [Suspect]
     Indication: BIPOLAR DISORDER
     Dosage: 10 MG, DAILY
     Route: 048
  6. LEVOXYL [Concomitant]
     Indication: HYPOTHYROIDISM
     Dosage: 88 UG, 1X/DAY
  7. ARICEPT [Concomitant]
     Dosage: 10 MG, UNK
  8. DARIFENACIN [Concomitant]
     Indication: HYPERTONIC BLADDER
     Dosage: 7.5 MG, UNK
  9. THEOPHYLLINE [Concomitant]
     Indication: CHRONIC OBSTRUCTIVE PULMONARY DISEASE
     Dosage: 200 MG, UNK
  10. ASCORBIC ACID [Concomitant]
     Dosage: UNK
  11. OMEPRAZOLE [Concomitant]
     Indication: GASTROOESOPHAGEAL REFLUX DISEASE
     Dosage: 20 MG, 1X/DAY
  12. OMEPRAZOLE [Concomitant]
     Indication: FLATULENCE
  13. TOPIRAMATE [Concomitant]
     Dosage: 50 MG, UNK
  14. CHANTIX [Suspect]
     Dosage: 1 MG, 2X/DAY
     Route: 048
     Dates: start: 20111101
  15. LOSARTAN [Concomitant]
     Indication: HYPERTENSION
     Dosage: 25 MG, 1X/DAY
  16. BENZONATATE [Concomitant]
     Indication: CHRONIC OBSTRUCTIVE PULMONARY DISEASE
     Dosage: 200 MG, 1X/DAY
  17. LAMOTRIGINE [Concomitant]
     Dosage: 25 MG, UNK
  18. IRON [Concomitant]
     Dosage: UNK
  19. TRAMADOL [Concomitant]
     Indication: PAIN
     Dosage: UNK
  20. CHANTIX [Suspect]
     Dosage: UNK
     Route: 048
     Dates: start: 20111101, end: 20111101
  21. XANAX [Concomitant]
     Indication: ANXIETY
     Dosage: 0.5 MG, UNK
  22. CITALOPRAM [Concomitant]
     Dosage: 40 MG, UNK
  23. XANAX [Concomitant]
     Indication: BIPOLAR DISORDER
  24. LUTEIN [Concomitant]
     Indication: CATARACT
     Dosage: UNK

REACTIONS (6)
  - INCORRECT DOSE ADMINISTERED [None]
  - PHOTOSENSITIVITY REACTION [None]
  - TREMOR [None]
  - SOMNOLENCE [None]
  - ANXIETY [None]
  - FATIGUE [None]
